FAERS Safety Report 7505080-2 (Version None)
Quarter: 2011Q2

REPORT INFORMATION
  Report Type: 
  Country: None (occurrence: None)
  Receive Date: 20110526
  Receipt Date: 20110518
  Transmission Date: 20111010
  Serious: No
  Sender: FDA-Public Use
  Company Number: US-BIOGENIDEC-2011BI018884

PATIENT
  Age: 32 Year
  Sex: Female

DRUGS (5)
  1. TYSABRI [Suspect]
     Route: 042
     Dates: start: 20070101, end: 20080801
  2. LYRICA [Concomitant]
     Indication: NEUROPATHY PERIPHERAL
     Dates: start: 20050101
  3. SEROQUEL [Concomitant]
     Indication: INSOMNIA
     Dates: start: 20040101
  4. LIPITOR [Concomitant]
     Indication: BLOOD CHOLESTEROL INCREASED
     Dates: start: 20060101
  5. TYSABRI [Suspect]
     Indication: MULTIPLE SCLEROSIS
     Route: 042
     Dates: start: 20090701

REACTIONS (11)
  - FATIGUE [None]
  - HEADACHE [None]
  - NECK PAIN [None]
  - PAIN [None]
  - GASTROOESOPHAGEAL REFLUX DISEASE [None]
  - NAUSEA [None]
  - CHILLS [None]
  - HIATUS HERNIA [None]
  - WHITE BLOOD CELL COUNT INCREASED [None]
  - ASTHENIA [None]
  - PYREXIA [None]
